FAERS Safety Report 10519635 (Version 2)
Quarter: 2014Q4

REPORT INFORMATION
  Report Type: Spontaneous
  Country: US (occurrence: US)
  Receive Date: 20141015
  Receipt Date: 20141205
  Transmission Date: 20150528
  Serious: No
  Sender: FDA-Public Use
  Company Number: US-PFIZER INC-2014278942

PATIENT
  Age: 61 Year
  Sex: Male
  Weight: 83.9 kg

DRUGS (1)
  1. LIPITOR [Suspect]
     Active Substance: ATORVASTATIN CALCIUM
     Dosage: 40 MG, 1X/DAY

REACTIONS (3)
  - Neuropathy peripheral [Unknown]
  - Musculoskeletal disorder [Unknown]
  - Pain [Unknown]
